FAERS Safety Report 6019262-2 (Version None)
Quarter: 2008Q4

REPORT INFORMATION
  Report Type: 
  Country: None (occurrence: None)
  Receive Date: 20081219
  Receipt Date: 20080714
  Transmission Date: 20090506
  Serious: Yes (Other)
  Sender: FDA-Public Use
  Company Number: US200807002659

PATIENT
  Age: 78 Year
  Sex: Male

DRUGS (2)
  1. HUMULIN R [Suspect]
  2. LANTUS [Concomitant]

REACTIONS (2)
  - DRUG INEFFECTIVE [None]
  - SHOCK HYPOGLYCAEMIC [None]
